FAERS Safety Report 6065267-5 (Version None)
Quarter: 2009Q1

REPORT INFORMATION
  Report Type: 
  Country: None (occurrence: None)
  Receive Date: 20090130
  Receipt Date: 20090114
  Transmission Date: 20090719
  Serious: Yes (Death, Hospitalization)
  Sender: FDA-Public Use
  Company Number: 2009S1000673

PATIENT
  Age: 80 Year
  Sex: Male

DRUGS (10)
  1. AZATHIOPRINE [Suspect]
     Indication: IDIOPATHIC PULMONARY FIBROSIS
     Dosage: 150 MG;DAILY;ORAL
     Route: 048
     Dates: start: 20080723, end: 20090105
  2. CALCICHEW D3 (LEKOVIT CA) [Concomitant]
  3. CO-TRIMOXAZOLE (CO-TRIMOXAZOLE) [Concomitant]
  4. FERROUS SULPHATE (FERROUS SULFATE) [Concomitant]
  5. INFLUENZA VIRUS (INFLUENZA VACCINE) [Concomitant]
  6. ACETYLCYSTEINE [Concomitant]
  7. OMEPRAZOLE [Concomitant]
  8. ACETAMINOPHEN [Concomitant]
  9. QUININE SULPHATE (QUININE SULFATE) [Concomitant]
  10. VISCOTEARS (CARBOMER) [Concomitant]

REACTIONS (5)
  - DYSPNOEA [None]
  - INFLUENZA LIKE ILLNESS [None]
  - LYMPHOPENIA [None]
  - METABOLIC ACIDOSIS [None]
  - RESPIRATORY ACIDOSIS [None]
